FAERS Safety Report 14518417 (Version 3)
Quarter: 2018Q1

REPORT INFORMATION
  Report Type: Report from Study
  Country: US (occurrence: US)
  Receive Date: 20180212
  Receipt Date: 20180321
  Transmission Date: 20180509
  Serious: Yes (Other)
  Sender: FDA-Public Use
  Company Number: US-JNJFOC-20171127803

PATIENT
  Age: 76 Year
  Sex: Male

DRUGS (11)
  1. PREDNISOLONE ACETATE. [Concomitant]
     Active Substance: PREDNISOLONE ACETATE
  2. ALAWAY [Concomitant]
     Active Substance: KETOTIFEN FUMARATE
  3. BENADRYL ALLERGY [Concomitant]
     Active Substance: DIPHENHYDRAMINE HYDROCHLORIDE
  4. TRIAMCINOLONE ACETONIDE. [Concomitant]
     Active Substance: TRIAMCINOLONE ACETONIDE
  5. HOMATROPINE HBR [Concomitant]
  6. BACTRIM DS [Concomitant]
     Active Substance: SULFAMETHOXAZOLE\TRIMETHOPRIM
  7. IPRATROPIUM BROMIDE. [Concomitant]
     Active Substance: IPRATROPIUM BROMIDE
  8. IMBRUVICA [Suspect]
     Active Substance: IBRUTINIB
     Indication: MANTLE CELL LYMPHOMA
     Route: 048
     Dates: start: 20171027, end: 20180201
  9. PREDNISONE. [Concomitant]
     Active Substance: PREDNISONE
  10. LISINOPRIL. [Concomitant]
     Active Substance: LISINOPRIL
  11. CLARITIN [Concomitant]
     Active Substance: LORATADINE

REACTIONS (7)
  - Fatigue [Not Recovered/Not Resolved]
  - Vision blurred [Not Recovered/Not Resolved]
  - Drug ineffective [Unknown]
  - Eye haemorrhage [Unknown]
  - Pruritus [Not Recovered/Not Resolved]
  - Ascites [Unknown]
  - Eye pruritus [Not Recovered/Not Resolved]

NARRATIVE: CASE EVENT DATE: 2017
